FAERS Safety Report 9516683 (Version 1)
Quarter: 2013Q1

REPORT INFORMATION
  Report Type: Spontaneous
  Country: US (occurrence: None)
  Receive Date: 20130305
  Receipt Date: 20130305
  Transmission Date: 20140127
  Serious: Yes (Other)
  Sender: FDA-Public Use
  Company Number: 163-21880-12120635

PATIENT
  Age: 64 Year
  Sex: Female

DRUGS (4)
  1. REVLIMID (LENALIDOMIDE) (CAPSULES) [Suspect]
     Dosage: 10 MG, 28 IN 28 D, PO
     Dates: start: 20080114
  2. AMBIEN(ZOLPIDEM TARTRATE)(UNKNOWN) [Concomitant]
  3. TRAZODONE(TRAZODONE)(UNKNOWN) [Concomitant]
  4. ACIPHEX(RABEPRAZOLE SODIUM)(UNKNOWN) [Concomitant]

REACTIONS (5)
  - Diarrhoea [None]
  - Dry skin [None]
  - Anaemia [None]
  - Insomnia [None]
  - Neuropathy peripheral [None]
